FAERS Safety Report 8847829 (Version 1)
Quarter: 2012Q4

REPORT INFORMATION
  Report Type: 
  Country: BR (occurrence: BR)
  Receive Date: 20121018
  Receipt Date: 20121018
  Transmission Date: 20130627
  Serious: Yes (Other)
  Sender: FDA-Public Use
  Company Number: BR-JNJFOC-20121007022

PATIENT
  Age: 32 None
  Sex: Female
  Weight: 75 kg

DRUGS (4)
  1. REMICADE [Suspect]
     Indication: CROHN^S DISEASE
     Route: 042
     Dates: start: 201203
  2. REMICADE [Suspect]
     Indication: CROHN^S DISEASE
     Dosage: patient received three infusions
     Route: 042
     Dates: start: 20121001
  3. REMICADE [Suspect]
     Indication: CROHN^S DISEASE
     Route: 042
     Dates: start: 2009, end: 201003
  4. CICLO 21 [Concomitant]
     Indication: CONTRACEPTION
     Route: 065
     Dates: start: 201109

REACTIONS (2)
  - Tuberculosis [Not Recovered/Not Resolved]
  - C-reactive protein abnormal [Not Recovered/Not Resolved]
